FAERS Safety Report 9162753 (Version 1)
Quarter: 2013Q1

REPORT INFORMATION
  Report Type: Spontaneous
  Country: US (occurrence: None)
  Receive Date: 20130313
  Receipt Date: 20130313
  Transmission Date: 20140127
  Serious: Yes (Other)
  Sender: FDA-Public Use
  Company Number: None

PATIENT
  Sex: Female
  Weight: 70.31 kg

DRUGS (1)
  1. PROLIA INJECTION-AMGEN [Suspect]
     Indication: BONE DENSITY DECREASED
     Dosage: EVERY 6 MOS INJECTION
     Dates: start: 20121102

REACTIONS (9)
  - Malaise [None]
  - Respiratory tract infection [None]
  - Pneumonia [None]
  - Pain in jaw [None]
  - Ear pain [None]
  - Abdominal pain upper [None]
  - Tooth loss [None]
  - Arthralgia [None]
  - Myalgia [None]
